FAERS Safety Report 10744115 (Version 7)
Quarter: 2016Q3

REPORT INFORMATION
  Report Type: Report from Study
  Country: MX (occurrence: MX)
  Receive Date: 20150128
  Receipt Date: 20160830
  Transmission Date: 20161109
  Serious: Yes (Other)
  Sender: FDA-Public Use
  Company Number: PHHY2014MX078927

PATIENT
  Sex: Female
  Weight: 75 kg

DRUGS (13)
  1. ASPIRIN PROTECT [Concomitant]
     Active Substance: ASPIRIN
     Indication: BLOOD PRESSURE INCREASED
  2. EXFORGE HCT [Suspect]
     Active Substance: AMLODIPINE BESYLATE\HYDROCHLOROTHIAZIDE\VALSARTAN
     Dosage: 0.5 DF, QD (VALSARTAN 320 MG, AMLODIPINE 10 MG AND HYDROCHLOROTHIAZIDE 25 MG)
     Route: 048
     Dates: start: 2012
  3. CONCOR [Concomitant]
     Active Substance: BISOPROLOL FUMARATE
     Indication: CARDIAC DISORDER
     Dosage: 1 DF, QD (AT NOON)
     Route: 065
     Dates: start: 201311
  4. BEZAFIBRATE [Concomitant]
     Active Substance: BEZAFIBRATE
     Indication: PRODUCT USED FOR UNKNOWN INDICATION
     Route: 065
  5. OMEGA 3 [Concomitant]
     Active Substance: OMEGA-3 FATTY ACIDS
     Indication: BLOOD CHOLESTEROL INCREASED
     Dosage: 1 DF, QD (10 YEARS AGO)
     Route: 048
  6. EXFORGE HCT [Suspect]
     Active Substance: AMLODIPINE BESYLATE\HYDROCHLOROTHIAZIDE\VALSARTAN
     Indication: HYPERTENSION
     Dosage: 1 DF, QD (VALSARTAN 320 MG, AMLODIPINE 10 MG AND HYDROCHLOROTHIAZIDE 25 MG)
     Route: 048
     Dates: start: 201111
  7. CLOPIDOGREL [Concomitant]
     Active Substance: CLOPIDOGREL BISULFATE
     Indication: CARDIOVASCULAR DISORDER
     Dosage: 1 DF, QD (AT 14:00)
     Route: 065
     Dates: start: 201311
  8. ASPIRIN PROTECT [Concomitant]
     Active Substance: ASPIRIN
     Indication: ANTICOAGULANT THERAPY
     Dosage: 1 DF, QD/10 YEARS AGO
     Route: 048
  9. ASPIRIN PROTECT [Concomitant]
     Active Substance: ASPIRIN
     Indication: CARDIOVASCULAR DISORDER
  10. OMEGA 3 [Concomitant]
     Active Substance: OMEGA-3 FATTY ACIDS
     Indication: BLOOD TRIGLYCERIDES ABNORMAL
  11. CRESTOR [Concomitant]
     Active Substance: ROSUVASTATIN CALCIUM
     Indication: BLOOD CHOLESTEROL INCREASED
     Dosage: 10 MG, QD (MORE THAN 15 YEARS AGO)
     Route: 048
  12. CRESTOR [Concomitant]
     Active Substance: ROSUVASTATIN CALCIUM
     Indication: BLOOD TRIGLYCERIDES ABNORMAL
  13. ASPIRIN PROTECT [Concomitant]
     Active Substance: ASPIRIN
     Indication: INFARCTION

REACTIONS (20)
  - Feeling abnormal [Recovered/Resolved]
  - Malaise [Recovered/Resolved]
  - Throat irritation [Not Recovered/Not Resolved]
  - Gastritis [Not Recovered/Not Resolved]
  - Lip dry [Not Recovered/Not Resolved]
  - Dyspepsia [Not Recovered/Not Resolved]
  - Fatigue [Recovered/Resolved]
  - Drug intolerance [Not Recovered/Not Resolved]
  - Wrong technique in product usage process [Not Recovered/Not Resolved]
  - Asthenia [Recovered/Resolved]
  - Agitation [Not Recovered/Not Resolved]
  - Blindness [Unknown]
  - Productive cough [Not Recovered/Not Resolved]
  - Infarction [Not Recovered/Not Resolved]
  - Influenza [Not Recovered/Not Resolved]
  - Anxiety [Unknown]
  - Abasia [Recovered/Resolved]
  - Blood pressure decreased [Recovered/Resolved]
  - Dry throat [Not Recovered/Not Resolved]
  - Blood pressure increased [Not Recovered/Not Resolved]

NARRATIVE: CASE EVENT DATE: 2012
